FAERS Safety Report 4394038-0 (Version None)
Quarter: 2004Q3

REPORT INFORMATION
  Report Type: 
  Country: None (occurrence: None)
  Receive Date: 20040707
  Receipt Date: 20040628
  Transmission Date: 20050211
  Serious: Yes (Life-Threatening, Hospitalization)
  Sender: FDA-Public Use
  Company Number: 8303

PATIENT
  Age: 81 Year
  Sex: Male
  Weight: 69 kg

DRUGS (7)
  1. AMIODARONE HCL [Suspect]
     Indication: ATRIAL FIBRILLATION
     Dosage: 200 MG TID PO
     Route: 048
     Dates: start: 20031101, end: 20031230
  2. SIMVASTATIN [Suspect]
     Indication: BLOOD CHOLESTEROL ABNORMAL
     Dosage: 40 MG PO
     Route: 048
     Dates: start: 20031101, end: 20031230
  3. CLOPIDOGREL [Concomitant]
  4. ASPIRIN [Concomitant]
  5. ACETAMINOPHEN [Concomitant]
  6. IRBESARTAN [Concomitant]
  7. AMLODIPINE [Concomitant]

REACTIONS (1)
  - RHABDOMYOLYSIS [None]
